FAERS Safety Report 10008990 (Version 1)
Quarter: 2014Q1

REPORT INFORMATION
  Report Type: Spontaneous
  Country: US (occurrence: US)
  Receive Date: 20140313
  Receipt Date: 20140313
  Transmission Date: 20141002
  Serious: No
  Sender: FDA-Public Use
  Company Number: US-INCYTE CORPORATION-2012IN001069

PATIENT
  Age: 66 Year
  Sex: Female

DRUGS (8)
  1. JAKAFI [Suspect]
     Indication: MYELOFIBROSIS
     Dosage: 10 MG, BID
     Route: 048
     Dates: start: 20120501, end: 2012
  2. JAKAFI [Suspect]
     Indication: POLYCYTHAEMIA VERA
     Dosage: 5 MG, BID
     Route: 048
     Dates: start: 2012
  3. JAKAFI [Suspect]
     Indication: CHRONIC MYELOMONOCYTIC LEUKAEMIA
  4. LEXAPRO [Concomitant]
  5. ATIVAN [Concomitant]
  6. ATENOLOL [Concomitant]
  7. IMODIUM [Concomitant]
  8. FOSAMAX [Concomitant]
     Dosage: ONCE WEEKLY

REACTIONS (3)
  - Alopecia [Not Recovered/Not Resolved]
  - Medication error [None]
  - Trichorrhexis [Not Recovered/Not Resolved]
